FAERS Safety Report 7231243-X (Version None)
Quarter: 2011Q1

REPORT INFORMATION
  Report Type: 
  Country: None (occurrence: None)
  Receive Date: 20110118
  Receipt Date: 20110111
  Transmission Date: 20110831
  Serious: Yes (Other)
  Sender: FDA-Public Use
  Company Number: B0693975A

PATIENT
  Age: 64 Year
  Sex: Male

DRUGS (4)
  1. PREDNISOLONE [Suspect]
  2. ANTIBIOTICS [Concomitant]
  3. ZINACEF [Suspect]
     Route: 042
     Dates: start: 20070223
  4. AVELOX [Suspect]

REACTIONS (21)
  - SWELLING [None]
  - WOUND [None]
  - ERYTHEMA [None]
  - SKIN HAEMORRHAGE [None]
  - STREPTOCOCCAL INFECTION [None]
  - PAIN [None]
  - CHILLS [None]
  - FEELING HOT [None]
  - MOBILITY DECREASED [None]
  - ARTHRITIS BACTERIAL [None]
  - FUNGAL INFECTION [None]
  - PYREXIA [None]
  - PNEUMONIA [None]
  - LEUKOCYTOCLASTIC VASCULITIS [None]
  - LEG AMPUTATION [None]
  - GAIT DISTURBANCE [None]
  - DISCOMFORT [None]
  - SEPSIS [None]
  - MALAISE [None]
  - THROMBOSIS [None]
  - ABSCESS [None]
